FAERS Safety Report 4653261-8 (Version None)
Quarter: 2005Q2

REPORT INFORMATION
  Report Type: 
  Country: None (occurrence: None)
  Receive Date: 20050503
  Receipt Date: 20050426
  Transmission Date: 20051028
  Serious: Yes (Hospitalization)
  Sender: FDA-Public Use
  Company Number: HQWYE076318APR05

PATIENT
  Age: 33 Year
  Sex: Male

DRUGS (1)
  1. RAPAMUNE [Suspect]
     Indication: PROPHYLAXIS AGAINST TRANSPLANT REJECTION
     Dosage: ^VARIABLE, BD^
     Route: 048
     Dates: start: 20050411

REACTIONS (2)
  - COMPLICATIONS OF TRANSPLANTED KIDNEY [None]
  - GRAFT DYSFUNCTION [None]
